FAERS Safety Report 11247600 (Version 1)
Quarter: 2015Q3

REPORT INFORMATION
  Report Type: Spontaneous
  Country: US (occurrence: None)
  Receive Date: 20150707
  Receipt Date: 20150707
  Transmission Date: 20151125
  Serious: Yes (Death, Hospitalization)
  Sender: FDA-Public Use
  Company Number: None

PATIENT
  Age: 54 Year
  Sex: Male
  Weight: 113.85 kg

DRUGS (26)
  1. EFFEXOR [Concomitant]
     Active Substance: VENLAFAXINE HYDROCHLORIDE
  2. ZOLPIDEM [Concomitant]
     Active Substance: ZOLPIDEM\ZOLPIDEM TARTRATE
  3. OMEPRAZOLE. [Concomitant]
     Active Substance: OMEPRAZOLE
  4. CRESTOR [Concomitant]
     Active Substance: ROSUVASTATIN CALCIUM
  5. NITROSTAT [Concomitant]
     Active Substance: NITROGLYCERIN
  6. LOSARTAN POTASSIUM. [Concomitant]
     Active Substance: LOSARTAN POTASSIUM
  7. INSULIN SYRINGE [Concomitant]
  8. HUMULIN NOS [Concomitant]
     Active Substance: INSULIN HUMAN
  9. IMIPRANE HCI [Concomitant]
  10. FEXOFENADINE [Concomitant]
     Active Substance: FEXOFENADINE\FEXOFENADINE HYDROCHLORIDE
  11. TESTOSTERONE. [Suspect]
     Active Substance: TESTOSTERONE
     Indication: BLOOD TESTOSTERONE DECREASED
     Route: 030
  12. TESTOSTERONE CYPIONATE. [Concomitant]
     Active Substance: TESTOSTERONE CYPIONATE
  13. WARFARIN SODIUM. [Concomitant]
     Active Substance: WARFARIN SODIUM
  14. PRASUGREL [Concomitant]
     Active Substance: PRASUGREL
  15. ISORSORBIDE MONOITRATE [Concomitant]
  16. NEUROTIN [Concomitant]
     Active Substance: GABAPENTIN
  17. FERREX [Concomitant]
  18. VITAMIN B [Concomitant]
     Active Substance: VITAMIN B
  19. CARVEDILOL. [Concomitant]
     Active Substance: CARVEDILOL
  20. RANEXA [Concomitant]
     Active Substance: RANOLAZINE
  21. BUMETANIDE. [Concomitant]
     Active Substance: BUMETANIDE
  22. ONGLYZA [Concomitant]
     Active Substance: SAXAGLIPTIN HYDROCHLORIDE
  23. KLOR-CON [Concomitant]
     Active Substance: POTASSIUM CHLORIDE
  24. TIZANIDINE HCL [Concomitant]
     Active Substance: TIZANIDINE HYDROCHLORIDE
  25. VIAGRA [Concomitant]
     Active Substance: SILDENAFIL CITRATE
  26. ASPIRIN. [Concomitant]
     Active Substance: ASPIRIN

REACTIONS (1)
  - Myocardial infarction [None]
